FAERS Safety Report 25311956 (Version 1)
Quarter: 2025Q2

REPORT INFORMATION
  Report Type: Spontaneous
  Country: US (occurrence: None)
  Receive Date: 20250513
  Receipt Date: 20250513
  Transmission Date: 20250716
  Serious: Yes (Hospitalization)
  Sender: FDA-CTU
  Company Number: None

PATIENT
  Age: 57 Year
  Sex: Male

DRUGS (2)
  1. ABIRATERONE [Suspect]
     Active Substance: ABIRATERONE
     Dates: start: 20250421, end: 20250509
  2. PREDNISONE [Concomitant]
     Active Substance: PREDNISONE
     Dates: start: 20250421, end: 20250509

REACTIONS (5)
  - Asthenia [None]
  - Arthralgia [None]
  - Pyrexia [None]
  - Headache [None]
  - Intentional dose omission [None]

NARRATIVE: CASE EVENT DATE: 20250509
